FAERS Safety Report 24544139 (Version 1)
Quarter: 2024Q4

REPORT INFORMATION
  Report Type: Spontaneous
  Country: US (occurrence: US)
  Receive Date: 20241024
  Receipt Date: 20241024
  Transmission Date: 20250115
  Serious: Yes (Other)
  Sender: PFIZER
  Company Number: US-PFIZER INC-PV202400136413

PATIENT
  Age: 58 Year
  Sex: Female
  Weight: 73.8 kg

DRUGS (5)
  1. LORLATINIB [Suspect]
     Active Substance: LORLATINIB
     Indication: Non-small cell lung cancer stage IV
     Dosage: 25 MG, DAILY
  2. LORLATINIB [Suspect]
     Active Substance: LORLATINIB
     Dosage: UPTITRATED TO THE FULL DOSE OF 100 MG DAILY AFTER 26 DAYS
  3. ATORVASTATIN [Concomitant]
     Active Substance: ATORVASTATIN
     Indication: High density lipoprotein increased
     Dosage: 80 MG, DAILY
  4. ATORVASTATIN [Concomitant]
     Active Substance: ATORVASTATIN
     Dosage: 40 MG, DAILY
  5. ATORVASTATIN [Concomitant]
     Active Substance: ATORVASTATIN
     Dosage: 80 MG, DAILY

REACTIONS (2)
  - Dyslipidaemia [Unknown]
  - Off label use [Unknown]
